FAERS Safety Report 10181266 (Version 1)
Quarter: 2014Q2

REPORT INFORMATION
  Report Type: Spontaneous
  Country: US (occurrence: US)
  Receive Date: 20140519
  Receipt Date: 20140519
  Transmission Date: 20141212
  Serious: No
  Sender: FDA-Public Use
  Company Number: US-AMGEN INC.-USASP2014030410

PATIENT
  Age: 65 Year
  Sex: Female

DRUGS (5)
  1. PROLIA [Suspect]
     Indication: OSTEOPOROSIS POSTMENOPAUSAL
     Route: 065
  2. HYDROCODONE                        /00060002/ [Concomitant]
  3. GABAPENTIN [Concomitant]
  4. CALCIUM [Concomitant]
  5. VITAMIN B12                        /00056201/ [Concomitant]

REACTIONS (3)
  - Pain [Unknown]
  - Dyspepsia [Unknown]
  - Arthralgia [Unknown]
